FAERS Safety Report 8847168 (Version 2)
Quarter: 2012Q4

REPORT INFORMATION
  Report Type: 
  Country: US (occurrence: US)
  Receive Date: 20121018
  Receipt Date: 20121228
  Transmission Date: 20130627
  Serious: Yes (Hospitalization, Other)
  Sender: FDA-Public Use
  Company Number: US-BAYER-2012-108164

PATIENT
  Sex: Female
  Weight: 54.42 kg

DRUGS (1)
  1. BETASERON [Suspect]
     Indication: MS
     Dosage: UNK, QOD
     Dates: start: 200902, end: 201103

REACTIONS (2)
  - Cystitis [Recovering/Resolving]
  - Nephrolithiasis [Recovered/Resolved]
